FAERS Safety Report 23250137 (Version 1)
Quarter: 2023Q4

REPORT INFORMATION
  Report Type: Report from Study
  Country: US (occurrence: US)
  Receive Date: 20231201
  Receipt Date: 20231201
  Transmission Date: 20240110
  Serious: Yes (Other)
  Sender: FDA-Public Use
  Company Number: US-REATA PHARMACEUTICALS INC.-2023USRTAOMA000223

PATIENT

DRUGS (1)
  1. SKYCLARYS [Suspect]
     Active Substance: OMAVELOXOLONE
     Indication: Friedreich^s ataxia
     Dosage: 150 MILLIGRAM, ONCE DAILY, ORAL
     Route: 048
     Dates: start: 20230707, end: 202310

REACTIONS (3)
  - Atrial fibrillation [Unknown]
  - Hyperhidrosis [Unknown]
  - Fatigue [None]

NARRATIVE: CASE EVENT DATE: 20230101
